FAERS Safety Report 9823028 (Version 3)
Quarter: 2015Q3

REPORT INFORMATION
  Report Type: Spontaneous
  Country: US (occurrence: US)
  Receive Date: 20140116
  Receipt Date: 20150807
  Transmission Date: 20151125
  Serious: No
  Sender: FDA-Public Use
  Company Number: US-GILEAD-2011-0035591

PATIENT
  Age: 57 Year
  Sex: Female

DRUGS (9)
  1. SEROQUEL [Concomitant]
     Active Substance: QUETIAPINE FUMARATE
  2. LETAIRIS [Suspect]
     Active Substance: AMBRISENTAN
     Indication: PULMONARY ARTERIAL HYPERTENSION
     Route: 048
  3. BENZTROPINE MESYLATE. [Concomitant]
     Active Substance: BENZTROPINE MESYLATE
  4. LETAIRIS [Suspect]
     Active Substance: AMBRISENTAN
     Route: 048
  5. LETAIRIS [Suspect]
     Active Substance: AMBRISENTAN
     Route: 048
     Dates: start: 201011
  6. ABILIFY [Concomitant]
     Active Substance: ARIPIPRAZOLE
  7. COUMADIN [Concomitant]
     Active Substance: WARFARIN SODIUM
  8. ZOLOFT [Concomitant]
     Active Substance: SERTRALINE HYDROCHLORIDE
  9. NEXIUM [Concomitant]
     Active Substance: ESOMEPRAZOLE MAGNESIUM

REACTIONS (3)
  - Chest pain [Unknown]
  - Fatigue [Unknown]
  - Accidental overdose [Unknown]

NARRATIVE: CASE EVENT DATE: 201101
